FAERS Safety Report 21770344 (Version 1)
Quarter: 2022Q4

REPORT INFORMATION
  Report Type: Spontaneous
  Country: BE (occurrence: BE)
  Receive Date: 20221223
  Receipt Date: 20221223
  Transmission Date: 20230113
  Serious: Yes (Hospitalization, Other)
  Sender: FDA-Public Use
  Company Number: BE-JNJFOC-20221237984

PATIENT
  Sex: Male

DRUGS (1)
  1. SIMPONI [Suspect]
     Active Substance: GOLIMUMAB
     Indication: Oligoarthritis
     Route: 058

REACTIONS (3)
  - Renal failure [Recovering/Resolving]
  - Pneumonia legionella [Recovering/Resolving]
  - Off label use [Unknown]
